FAERS Safety Report 7225939-3 (Version None)
Quarter: 2011Q1

REPORT INFORMATION
  Report Type: 
  Country: None (occurrence: None)
  Receive Date: 20110113
  Receipt Date: 20110105
  Transmission Date: 20110831
  Serious: Yes (Hospitalization)
  Sender: FDA-Public Use
  Company Number: NL-PFIZER INC-2010158148

PATIENT
  Age: 60 Year
  Sex: Male

DRUGS (3)
  1. EPIRUBICIN HYDROCHLORIDE [Suspect]
     Indication: OESOPHAGEAL ADENOCARCINOMA
     Dosage: UNK
  2. FLUOROURACIL [Suspect]
     Indication: OESOPHAGEAL ADENOCARCINOMA
  3. CISPLATIN [Suspect]
     Indication: OESOPHAGEAL ADENOCARCINOMA

REACTIONS (8)
  - ACUTE RESPIRATORY DISTRESS SYNDROME [None]
  - OESOPHAGEAL PERFORATION [None]
  - PERITONITIS [None]
  - SEPTIC SHOCK [None]
  - SUTURE RELATED COMPLICATION [None]
  - MEDIASTINITIS [None]
  - RENAL FAILURE ACUTE [None]
  - PLEURAL EFFUSION [None]
